FAERS Safety Report 7393776-5 (Version None)
Quarter: 2011Q1

REPORT INFORMATION
  Report Type: 
  Country: None (occurrence: None)
  Receive Date: 20110330
  Receipt Date: 20110330
  Transmission Date: 20110831
  Serious: Yes (Other)
  Sender: FDA-Public Use
  Company Number: None

PATIENT
  Age: 80 Year
  Sex: Male
  Weight: 85.2762 kg

DRUGS (1)
  1. ABILIFY [Suspect]
     Dates: start: 20100401, end: 20100430

REACTIONS (1)
  - TARDIVE DYSKINESIA [None]
